FAERS Safety Report 17730901 (Version 1)
Quarter: 2020Q2

REPORT INFORMATION
  Report Type: Spontaneous
  Country: IL (occurrence: IL)
  Receive Date: 20200430
  Receipt Date: 20200430
  Transmission Date: 20200714
  Serious: Yes (Hospitalization)
  Sender: FDA-Public Use
  Company Number: IL-ROCHE-2591811

PATIENT
  Age: 71 Year
  Sex: Male

DRUGS (8)
  1. DULOXETINE DR [Concomitant]
     Active Substance: DULOXETINE
  2. MICROPIRIN [Concomitant]
     Active Substance: ASPIRIN
  3. RYTMONORM [Concomitant]
     Active Substance: PROPAFENONE
     Route: 065
  4. ROSUVASTATIN TEVA [Concomitant]
     Active Substance: ROSUVASTATIN
     Route: 065
  5. GLUCOMIN [Concomitant]
     Active Substance: METFORMIN HYDROCHLORIDE
  6. ACTILYSE [Suspect]
     Active Substance: ALTEPLASE
     Indication: PRODUCT USED FOR UNKNOWN INDICATION
     Route: 065
     Dates: start: 20200416
  7. ENALAPRIL [Concomitant]
     Active Substance: ENALAPRIL
  8. DUODART [Concomitant]
     Active Substance: DUTASTERIDE\TAMSULOSIN

REACTIONS (4)
  - Lip swelling [Unknown]
  - Aphasia [Unknown]
  - Facial paralysis [Unknown]
  - Blood pressure decreased [Unknown]
